FAERS Safety Report 24742817 (Version 2)
Quarter: 2025Q1

REPORT INFORMATION
  Report Type: Spontaneous
  Country: CA (occurrence: CA)
  Receive Date: 20241217
  Receipt Date: 20250102
  Transmission Date: 20250409
  Serious: Yes (Other)
  Sender: PFIZER
  Company Number: CA-PFIZER INC-202400317273

PATIENT
  Age: 29 Year
  Sex: Female

DRUGS (5)
  1. RUXIENCE [Suspect]
     Active Substance: RITUXIMAB-PVVR
     Indication: Atypical haemolytic uraemic syndrome
     Dosage: 670 MG WEEKLY, 4 WEEKS
     Route: 042
     Dates: start: 20241126
  2. RUXIENCE [Suspect]
     Active Substance: RITUXIMAB-PVVR
     Dosage: 670 MG, WEEKLY 4 WEEKS
     Route: 042
     Dates: start: 20241126
  3. RUXIENCE [Suspect]
     Active Substance: RITUXIMAB-PVVR
     Dosage: 670 MG (WEEKLY 4 WEEKS)
     Route: 042
     Dates: start: 20241210
  4. RUXIENCE [Suspect]
     Active Substance: RITUXIMAB-PVVR
     Dosage: 670 MG AFTER 1 WEEK
     Route: 042
     Dates: start: 20241224
  5. RUXIENCE [Suspect]
     Active Substance: RITUXIMAB-PVVR
     Dosage: 670 MG AFTER 1 WEEK
     Route: 042
     Dates: start: 20241224

REACTIONS (8)
  - Migraine [Recovering/Resolving]
  - Cough [Recovering/Resolving]
  - Nasal congestion [Recovering/Resolving]
  - Oropharyngeal pain [Recovering/Resolving]
  - Productive cough [Recovering/Resolving]
  - Pyrexia [Recovering/Resolving]
  - Chills [Recovering/Resolving]
  - Headache [Not Recovered/Not Resolved]

NARRATIVE: CASE EVENT DATE: 20240101
